FAERS Safety Report 16795196 (Version 2)
Quarter: 2020Q1

REPORT INFORMATION
  Report Type: Spontaneous
  Country: CZ (occurrence: CZ)
  Receive Date: 20190911
  Receipt Date: 20200205
  Transmission Date: 20200409
  Serious: Yes (Other)
  Sender: FDA-Public Use
  Company Number: CZ-PFIZER INC-2019391914

PATIENT
  Age: 57 Year
  Sex: Female

DRUGS (2)
  1. CONTROLOC [Suspect]
     Active Substance: PANTOPRAZOLE SODIUM
     Indication: DYSURIA
     Dosage: UNK UNK, Q1HR (EVERY 1 HOUR)
     Route: 042
     Dates: start: 20190828, end: 20190828
  2. NOVALGIN (METAMIZOLE SODIUM) [Suspect]
     Active Substance: METAMIZOLE SODIUM
     Indication: DYSURIA
     Dosage: UNK UNK, Q1HR (EVERY 1 HOUR)
     Route: 042
     Dates: start: 20190828, end: 20190828

REACTIONS (3)
  - Lip swelling [Recovered/Resolved]
  - Oedema mouth [Recovered/Resolved]
  - Hypersensitivity [Recovered/Resolved]

NARRATIVE: CASE EVENT DATE: 20190828
